FAERS Safety Report 4623699-3 (Version None)
Quarter: 2005Q1

REPORT INFORMATION
  Report Type: 
  Country: None (occurrence: None)
  Receive Date: 20050329
  Receipt Date: 20050316
  Transmission Date: 20050727
  Serious: Yes (Death, Other)
  Sender: FDA-Public Use
  Company Number: 2004047420

PATIENT
  Age: 26 Year
  Sex: Male

DRUGS (4)
  1. DOXYCYCLINE [Suspect]
     Indication: PLASMODIUM FALCIPARUM INFECTION
  2. QUININE SULFATE [Suspect]
     Indication: ILL-DEFINED DISORDER
     Dosage: 1200 MG (600 MG, 2 IN 1 D); INTRAVENOUS
     Route: 042
  3. CHLOROQUINE [Concomitant]
  4. CEFUROXIME [Concomitant]

REACTIONS (10)
  - ASPERGILLOSIS [None]
  - BRAIN ABSCESS [None]
  - CEREBRAL ARTERY OCCLUSION [None]
  - CEREBRAL INFARCTION [None]
  - DISORIENTATION [None]
  - EYELID PTOSIS [None]
  - IMMUNODEFICIENCY [None]
  - RASH PAPULAR [None]
  - SYSTEMIC MYCOSIS [None]
  - TREMOR [None]
